FAERS Safety Report 7989256-6 (Version None)
Quarter: 2011Q4

REPORT INFORMATION
  Report Type: 
  Country: None (occurrence: None)
  Receive Date: 20111216
  Receipt Date: 20111216
  Transmission Date: 20120403
  Serious: No
  Sender: FDA-Public Use
  Company Number: None

PATIENT
  Sex: Female

DRUGS (2)
  1. ENBREL [Suspect]
     Indication: ANKYLOSING SPONDYLITIS
     Dosage: 50 MG QW SQ
     Route: 058
     Dates: start: 20111011, end: 20111122
  2. ENBREL [Suspect]

REACTIONS (2)
  - NEURALGIA [None]
  - HYPOAESTHESIA [None]
